FAERS Safety Report 14691636 (Version 4)
Quarter: 2018Q2

REPORT INFORMATION
  Report Type: Spontaneous
  Country: FR (occurrence: FR)
  Receive Date: 20180328
  Receipt Date: 20180619
  Transmission Date: 20180711
  Serious: Yes (Hospitalization, Other)
  Sender: FDA-Public Use
  Company Number: FR-ABBVIE-18K-056-2299955-00

PATIENT
  Age: 36 Year
  Sex: Male
  Weight: 66 kg

DRUGS (2)
  1. IMUREL [Suspect]
     Active Substance: AZATHIOPRINE SODIUM
     Indication: CROHN^S DISEASE
     Route: 065
     Dates: start: 2011, end: 2015
  2. HUMIRA [Suspect]
     Active Substance: ADALIMUMAB
     Indication: CROHN^S DISEASE
     Route: 058
     Dates: start: 201706, end: 201712

REACTIONS (9)
  - Hepatosplenic T-cell lymphoma [Not Recovered/Not Resolved]
  - Hepatosplenomegaly [Unknown]
  - Neutropenia [Unknown]
  - Thrombocytopenia [Unknown]
  - Epstein-Barr virus test positive [Unknown]
  - Leukopenia [Unknown]
  - Pyrexia [Unknown]
  - Asthenia [Unknown]
  - General physical health deterioration [Unknown]

NARRATIVE: CASE EVENT DATE: 201712
